FAERS Safety Report 8454883-9 (Version None)
Quarter: 2012Q2

REPORT INFORMATION
  Report Type: 
  Country: None (occurrence: None)
  Receive Date: 20120614
  Receipt Date: 20120605
  Transmission Date: 20120825
  Serious: No
  Sender: FDA-Public Use
  Company Number: B0807793A

PATIENT
  Age: 44 Year
  Sex: Female

DRUGS (5)
  1. ATAZANAVIR [Concomitant]
  2. EMTRICITABINE [Concomitant]
  3. RITONAVIR [Concomitant]
  4. ABACAVIR SULFATE AND LAMIVUDINE [Suspect]
     Indication: HIV INFECTION
  5. TRUVADA [Concomitant]

REACTIONS (6)
  - OEDEMA [None]
  - DYSPNOEA [None]
  - HAEMODIALYSIS [None]
  - DECREASED APPETITE [None]
  - TUBULOINTERSTITIAL NEPHRITIS [None]
  - VOMITING [None]
